FAERS Safety Report 25419389 (Version 4)
Quarter: 2025Q2

REPORT INFORMATION
  Report Type: Spontaneous
  Country: US (occurrence: US)
  Receive Date: 20250610
  Receipt Date: 20250624
  Transmission Date: 20250717
  Serious: Yes (Hospitalization, Other)
  Sender: PFIZER
  Company Number: US-PFIZER INC-202500117722

PATIENT
  Age: 76 Year
  Sex: Male
  Weight: 98.1 kg

DRUGS (16)
  1. ELREXFIO [Suspect]
     Active Substance: ELRANATAMAB-BCMM
     Indication: Plasma cell myeloma
     Dosage: 12 MG, 1X/DAY ONCE
     Route: 058
     Dates: start: 20250602
  2. ELREXFIO [Suspect]
     Active Substance: ELRANATAMAB-BCMM
     Route: 058
     Dates: start: 20250607
  3. DEXAMETHASONE SODIUM PHOSPHATE [Suspect]
     Active Substance: DEXAMETHASONE SODIUM PHOSPHATE
     Route: 042
     Dates: start: 20250602
  4. DEXAMETHASONE SODIUM PHOSPHATE [Suspect]
     Active Substance: DEXAMETHASONE SODIUM PHOSPHATE
     Route: 041
     Dates: start: 20250603
  5. DEXAMETHASONE SODIUM PHOSPHATE [Suspect]
     Active Substance: DEXAMETHASONE SODIUM PHOSPHATE
     Dosage: 10 MG, 2X/DAY (DOSE WAS GIVEN EVERY 12 HOURS FOR A 24 HOUR PERIOD)
     Route: 042
     Dates: start: 20250605, end: 20250605
  6. CEFEPIME [Suspect]
     Active Substance: CEFEPIME HYDROCHLORIDE
     Indication: Infection
     Dosage: WAS INITIATED AT DOSE 2GRAMS IV PIGGY BACK EVERY 12 HOURS
     Route: 041
     Dates: start: 20250605
  7. KEPPRA [Suspect]
     Active Substance: LEVETIRACETAM
     Route: 042
     Dates: start: 20250605
  8. KEPPRA [Suspect]
     Active Substance: LEVETIRACETAM
     Dosage: 750 MG, 2X/DAY
     Route: 048
     Dates: start: 202506
  9. ACYCLOVIR [Concomitant]
     Active Substance: ACYCLOVIR
     Indication: Infection prophylaxis
     Dosage: 400 MG, 2X/DAY
     Route: 048
  10. APIXABAN [Concomitant]
     Active Substance: APIXABAN
     Indication: Thrombosis prophylaxis
     Dosage: 5 MG, DAILY
     Route: 048
  11. GABAPENTIN [Concomitant]
     Active Substance: GABAPENTIN
     Indication: Pain
     Dosage: 900 MG, DAILY IN THE MORNING AND AT NIGHT
     Route: 048
  12. LEVOTHYROXINE [Concomitant]
     Active Substance: LEVOTHYROXINE
     Indication: Thyroid hormone replacement therapy
     Dosage: 100 UG, 1X/DAY
  13. LOSARTAN [Concomitant]
     Active Substance: LOSARTAN
     Indication: Blood pressure abnormal
     Dosage: 50 MG, 1X/DAY
  14. METOPROLOL SUCCINATE [Concomitant]
     Active Substance: METOPROLOL SUCCINATE
     Indication: Blood pressure abnormal
     Dosage: 12.5 MG, DAILY (TABLET ONE HALF TABLET, EQUAL TO 12.5MG DAILY)
     Dates: end: 20250606
  15. OMEPRAZOLE [Concomitant]
     Active Substance: OMEPRAZOLE
     Dosage: 40MG CAPSULE BY MOUTH ONCE DAILY
     Route: 048
  16. BACTRIM [Concomitant]
     Active Substance: SULFAMETHOXAZOLE\TRIMETHOPRIM
     Indication: Infection prophylaxis

REACTIONS (2)
  - Cytokine release syndrome [Unknown]
  - Immune effector cell-associated neurotoxicity syndrome [Unknown]

NARRATIVE: CASE EVENT DATE: 20250604
